FAERS Safety Report 24863008 (Version 3)
Quarter: 2025Q1

REPORT INFORMATION
  Report Type: Spontaneous
  Country: US (occurrence: US)
  Receive Date: 20250120
  Receipt Date: 20250220
  Transmission Date: 20250408
  Serious: No
  Sender: PFIZER
  Company Number: US-PFIZER INC-PV202500007009

PATIENT
  Age: 12 Year
  Sex: Male
  Weight: 49.2 kg

DRUGS (5)
  1. GENOTROPIN [Suspect]
     Active Substance: SOMATROPIN
     Indication: Hypopituitarism
     Route: 058
     Dates: start: 2024
  2. GENOTROPIN [Suspect]
     Active Substance: SOMATROPIN
     Indication: Growth hormone deficiency
     Dosage: INJECT 1.9 (ALTERNATE 1.8 MG AND 2.0 MG); EQUALS TO 0.24 MG/KG/WK
     Route: 058
     Dates: start: 20240402
  3. GENOTROPIN [Suspect]
     Active Substance: SOMATROPIN
     Indication: Short stature
     Dosage: INJECT 1.9 (ALTERNATE 1.8 MG AND 2.0 MG); EQUALS TO 0.24 MG/KG/WK
     Route: 058
     Dates: start: 20240402
  4. GENOTROPIN [Suspect]
     Active Substance: SOMATROPIN
     Route: 058
     Dates: start: 20241114
  5. GENOTROPIN [Suspect]
     Active Substance: SOMATROPIN
     Route: 058
     Dates: start: 20241122

REACTIONS (4)
  - Pain in extremity [Unknown]
  - Bone density increased [Unknown]
  - Sinus disorder [Unknown]
  - Insulin-like growth factor increased [Unknown]

NARRATIVE: CASE EVENT DATE: 20240402
